FAERS Safety Report 5851517-4 (Version None)
Quarter: 2008Q3

REPORT INFORMATION
  Report Type: 
  Country: None (occurrence: None)
  Receive Date: 20080820
  Receipt Date: 20080812
  Transmission Date: 20090109
  Serious: Yes (Hospitalization, Disabling)
  Sender: FDA-Public Use
  Company Number: US-ELI_LILLY_AND_COMPANY-US200806004716

PATIENT
  Age: 41 Year
  Sex: Female
  Weight: 54.422 kg

DRUGS (5)
  1. CYMBALTA [Suspect]
     Indication: BIPOLAR II DISORDER
     Dosage: 120 MG, UNK
     Dates: start: 20070101, end: 20080601
  2. GEODON [Concomitant]
     Dosage: 40 MG, UNK
  3. SEROQUEL [Concomitant]
  4. LITHIUM CARBONATE [Concomitant]
  5. RISPERIDONE [Concomitant]
     Dosage: 1 MG, UNK
     Dates: start: 20080101

REACTIONS (3)
  - FATIGUE [None]
  - MEIGE'S SYNDROME [None]
  - TARDIVE DYSKINESIA [None]
